FAERS Safety Report 9869468 (Version 1)
Quarter: 2014Q1

REPORT INFORMATION
  Report Type: Spontaneous
  Country: US (occurrence: US)
  Receive Date: 20140205
  Receipt Date: 20140205
  Transmission Date: 20141002
  Serious: No
  Sender: FDA-Public Use
  Company Number: US-PFIZER INC-2014029180

PATIENT
  Age: 47 Year
  Sex: Male
  Weight: 68.03 kg

DRUGS (10)
  1. GABAPENTIN [Suspect]
     Indication: JOINT DISLOCATION
     Dosage: UNK
  2. GABAPENTIN [Suspect]
     Indication: JOINT INJURY
  3. GABAPENTIN [Suspect]
     Indication: WINGED SCAPULA
  4. GABAPENTIN [Suspect]
     Indication: LONG THORACIC NERVE PALSY
  5. CYMBALTA [Concomitant]
     Dosage: UNK
  6. LISINOPRIL [Concomitant]
     Dosage: UNK
  7. IBUPROFEN [Concomitant]
     Dosage: UNK
  8. XANAX [Concomitant]
     Dosage: UNK
  9. OXYCODONE [Concomitant]
     Dosage: UNK
  10. METHADONE [Concomitant]
     Dosage: UNK

REACTIONS (1)
  - Drug ineffective for unapproved indication [Unknown]
